FAERS Safety Report 8983989 (Version 1)
Quarter: 2012Q4

REPORT INFORMATION
  Report Type: Spontaneous
  Country: US (occurrence: None)
  Receive Date: 20121214
  Receipt Date: 20121214
  Transmission Date: 20130627
  Serious: Yes (Hospitalization)
  Sender: FDA-Public Use
  Company Number: 1520977

PATIENT
  Age: 68 Year
  Sex: Female

DRUGS (3)
  1. OXALIPLATIN [Suspect]
     Indication: METASTATIC COLON CANCER
  2. LEUCOVORIN [Concomitant]
  3. FLUOROURACIL [Concomitant]

REACTIONS (10)
  - Thrombocytopenic purpura [None]
  - Blood pressure increased [None]
  - Heart rate increased [None]
  - Jaundice [None]
  - Anaemia [None]
  - Blood creatinine increased [None]
  - Haemolysis [None]
  - Blood bilirubin increased [None]
  - Aspartate aminotransferase increased [None]
  - Haemodialysis [None]
